FAERS Safety Report 7939981-8 (Version None)
Quarter: 2011Q4

REPORT INFORMATION
  Report Type: 
  Country: None (occurrence: None)
  Receive Date: 20111125
  Receipt Date: 20100913
  Transmission Date: 20120403
  Serious: Yes (Hospitalization)
  Sender: FDA-Public Use
  Company Number: US-ROCHE-699572

PATIENT
  Sex: Male
  Weight: 74.3 kg

DRUGS (30)
  1. PREDNISONE TAB [Concomitant]
     Route: 048
     Dates: start: 20100320, end: 20100322
  2. FOLIC ACID [Concomitant]
  3. PLAVIX [Concomitant]
  4. ISOSORBIDE MONONITRATE [Concomitant]
  5. LEVOXYL [Concomitant]
  6. SIMVASTATIN [Concomitant]
  7. SWINE FLU VACCINE [Concomitant]
     Dosage: DRUG REPORTED AS: H1N1 INFLUENZA VACCINE
     Dates: start: 20100121, end: 20100121
  8. ALBUTEROL [Concomitant]
  9. ACTEMRA [Suspect]
     Dosage: ENROLLED IN STUDY WA18062 IN PAST, FORM: INFUSION
     Route: 042
  10. CALCIUM/VITAMIN D [Concomitant]
     Dosage: 600MG/200 IU
  11. GLIPIZIDE [Concomitant]
     Dates: start: 20070114, end: 20100331
  12. ACTEMRA [Suspect]
     Route: 042
  13. METHOTREXATE [Concomitant]
     Dosage: AS MUCH NEEDED.
     Route: 048
  14. TOPROL-XL [Concomitant]
  15. ACTEMRA [Suspect]
     Indication: RHEUMATOID ARTHRITIS
     Dosage: FORM: INFUSION, DATE OF LAST DOSE PRIOR TO SAE: 04 FEBRUARY 2010.
     Route: 042
     Dates: start: 20050921, end: 20100205
  16. PREDNISONE TAB [Concomitant]
     Route: 048
     Dates: start: 20100317, end: 20100319
  17. LOVASTATIN [Concomitant]
  18. OMEPRAZOLE [Concomitant]
  19. METFORMIN [Concomitant]
     Dosage: DRUG NAME REPORTED AS METFORMIN HC.
  20. PREDNISONE TAB [Concomitant]
     Route: 048
     Dates: start: 20100314, end: 20100316
  21. PREDNISONE TAB [Concomitant]
     Route: 048
     Dates: start: 20100323, end: 20100325
  22. PREDNISONE TAB [Concomitant]
     Dosage: FREQUENCY: DAILY
     Route: 048
  23. ASPIRIN [Concomitant]
  24. POTASSIUM CHLORIDE [Concomitant]
  25. METHOTREXATE [Concomitant]
     Route: 048
     Dates: start: 20080109, end: 20100223
  26. PREDNISONE TAB [Concomitant]
     Route: 048
     Dates: start: 20001102, end: 20100223
  27. PREDNISONE TAB [Concomitant]
     Route: 048
     Dates: start: 20100224, end: 20100308
  28. FOSAMAX [Concomitant]
     Dosage: TOTAL DAILY DOSE: 70 MG PER WEEK
     Dates: start: 20030731, end: 20100223
  29. HYDROCHLOROTHIAZIDE [Concomitant]
  30. ASPIRIN [Concomitant]
     Dates: start: 20060819, end: 20100309

REACTIONS (3)
  - INTRADUCTAL PAPILLARY MUCINOUS NEOPLASM [None]
  - POSTOPERATIVE ILEUS [None]
  - PROTEUS INFECTION [None]
